FAERS Safety Report 16149723 (Version 1)
Quarter: 2019Q2

REPORT INFORMATION
  Report Type: Spontaneous
  Country: US (occurrence: US)
  Receive Date: 20190402
  Receipt Date: 20190402
  Transmission Date: 20190711
  Serious: No
  Sender: FDA-Public Use
  Company Number: US-DUSA PHARMACEUTICALS, INC.-2065154

PATIENT
  Sex: Female

DRUGS (2)
  1. BLU-U LIGHT (BLU-U BLUE LIGHT PHOTODYNAMIC THERAPY ILLUMINATOR) [Suspect]
     Active Substance: DEVICE
  2. LEVULAN KERASTICK [Suspect]
     Active Substance: AMINOLEVULINIC ACID HYDROCHLORIDE
     Indication: PRODUCT USED FOR UNKNOWN INDICATION

REACTIONS (7)
  - Pain [Unknown]
  - Application site reaction [Unknown]
  - Product complaint [Unknown]
  - Erythema [Unknown]
  - Application site vesicles [Unknown]
  - Wrong technique in product usage process [Unknown]
  - Impaired healing [Unknown]
